FAERS Safety Report 7800235-1 (Version None)
Quarter: 2011Q4

REPORT INFORMATION
  Report Type: 
  Country: None (occurrence: None)
  Receive Date: 20111006
  Receipt Date: 20111004
  Transmission Date: 20120403
  Serious: Yes (Hospitalization)
  Sender: FDA-Public Use
  Company Number: US-GLAXOSMITHKLINE-A0893389A

PATIENT
  Sex: Female

DRUGS (7)
  1. PRILOSEC [Concomitant]
  2. LEVOTHYROXINE SODIUM [Concomitant]
  3. AVANDAMET [Suspect]
     Indication: DIABETES MELLITUS
     Route: 048
     Dates: start: 20080101, end: 20100101
  4. PREMARIN [Concomitant]
  5. TRICOR [Concomitant]
  6. METOPROLOL TARTRATE [Concomitant]
  7. LIPITOR [Concomitant]

REACTIONS (5)
  - CHEST DISCOMFORT [None]
  - CARDIAC DISORDER [None]
  - WEIGHT INCREASED [None]
  - CARDIOVASCULAR DISORDER [None]
  - CHEST PAIN [None]
